FAERS Safety Report 15130857 (Version 3)
Quarter: 2018Q3

REPORT INFORMATION
  Report Type: Report from Study
  Country: US (occurrence: US)
  Receive Date: 20180711
  Receipt Date: 20180919
  Transmission Date: 20181010
  Serious: Yes (Other)
  Sender: FDA-Public Use
  Company Number: US-ACTELION-A-US2018-173802

PATIENT
  Age: 85 Year
  Sex: Female
  Weight: 64.4 kg

DRUGS (3)
  1. ADCIRCA [Concomitant]
     Active Substance: TADALAFIL
  2. VENTAVIS [Suspect]
     Active Substance: ILOPROST
     Indication: PULMONARY ARTERIAL HYPERTENSION
     Dosage: 5 MCG, 5 TO 9 TIMES PER DAY
     Route: 055
  3. VENTAVIS [Suspect]
     Active Substance: ILOPROST
     Dosage: 5 MCG, 6?9 TIMES PER DAY
     Route: 055

REACTIONS (9)
  - Dyspnoea [Unknown]
  - Hypotension [Unknown]
  - Dizziness [Unknown]
  - Feeling abnormal [Unknown]
  - Dysstasia [Unknown]
  - Transient ischaemic attack [Unknown]
  - Dizziness postural [Unknown]
  - Hospice care [Unknown]
  - Cardiac disorder [Unknown]
